FAERS Safety Report 5586190-6 (Version None)
Quarter: 2007Q4

REPORT INFORMATION
  Report Type: 
  Country: None (occurrence: None)
  Receive Date: 20071203
  Receipt Date: 20070502
  Transmission Date: 20080405
  Serious: Yes (Other)
  Sender: FDA-Public Use
  Company Number: US020031

PATIENT
  Sex: Male
  Weight: 131.5431 kg

DRUGS (2)
  1. TRISENOX [Suspect]
     Indication: ACUTE PROMYELOCYTIC LEUKAEMIA
     Dosage: 0.15 MG/KG QD INTRAVENOUS DRIP
     Route: 041
     Dates: start: 20070307, end: 20070426
  2. TRISENOX [Suspect]
     Indication: ACUTE PROMYELOCYTIC LEUKAEMIA
     Dosage: 0.15 MG/KG QD INTRAVENOUS DRIP
     Route: 041
     Dates: start: 20070501, end: 20070507

REACTIONS (1)
  - NEUTROPENIA [None]
